FAERS Safety Report 20524204 (Version 1)
Quarter: 2022Q1

REPORT INFORMATION
  Report Type: Spontaneous
  Country: CA (occurrence: None)
  Receive Date: 20220228
  Receipt Date: 20220228
  Transmission Date: 20220424
  Serious: Yes (Other)
  Sender: FDA-Public Use
  Company Number: CA-ROCHE-3028691

PATIENT
  Sex: Female

DRUGS (19)
  1. ACTEMRA [Suspect]
     Active Substance: TOCILIZUMAB
     Indication: Rheumatoid arthritis
     Route: 058
  2. ASTRAZENECA COVID-19 VACCINE [Suspect]
     Active Substance: AZD-1222
     Indication: Product used for unknown indication
     Route: 030
  3. BISOPROLOL [Concomitant]
     Active Substance: BISOPROLOL
     Route: 065
  4. ESCITALOPRAM OXALATE [Concomitant]
     Active Substance: ESCITALOPRAM OXALATE
  5. FOLIC ACID [Concomitant]
     Active Substance: FOLIC ACID
  6. JARDIANCE [Concomitant]
     Active Substance: EMPAGLIFLOZIN
  7. LEFLUNOMIDE [Concomitant]
     Active Substance: LEFLUNOMIDE
  8. LEUCOVORIN [Concomitant]
     Active Substance: LEUCOVORIN
  9. LEVOTHYROXINE SODIUM [Concomitant]
     Active Substance: LEVOTHYROXINE SODIUM
     Route: 065
  10. MAGNESIUM [Concomitant]
     Active Substance: MAGNESIUM
  11. METFORMIN HYDROCHLORIDE\SITAGLIPTIN PHOSPHATE [Concomitant]
     Active Substance: METFORMIN HYDROCHLORIDE\SITAGLIPTIN PHOSPHATE
  12. METHOTREXATE [Concomitant]
     Active Substance: METHOTREXATE
     Route: 048
  13. PREDNISONE [Concomitant]
     Active Substance: PREDNISONE
  14. PREGABALIN [Concomitant]
     Active Substance: PREGABALIN
  15. RABEPRAZOLE [Concomitant]
     Active Substance: RABEPRAZOLE
  16. RAMIPRIL [Concomitant]
     Active Substance: RAMIPRIL
  17. RISEDRONATE SODIUM [Concomitant]
     Active Substance: RISEDRONATE SODIUM
  18. ROSUVASTATIN CALCIUM [Concomitant]
     Active Substance: ROSUVASTATIN CALCIUM
  19. VITAMIN D3 [Concomitant]
     Active Substance: CHOLECALCIFEROL

REACTIONS (4)
  - Fatigue [Recovered/Resolved]
  - Headache [Recovered/Resolved]
  - Pyrexia [Recovered/Resolved]
  - Thrombosis [Recovered/Resolved]
